FAERS Safety Report 5071186-3 (Version None)
Quarter: 2006Q3

REPORT INFORMATION
  Report Type: 
  Country: None (occurrence: None)
  Receive Date: 20060804
  Receipt Date: 20060328
  Transmission Date: 20061208
  Serious: No
  Sender: FDA-Public Use
  Company Number: US-GLAXOSMITHKLINE-A0599478A

PATIENT
  Age: 44 Year
  Sex: Male

DRUGS (1)
  1. NICORETTE (MINT) [Suspect]

REACTIONS (4)
  - FATIGUE [None]
  - HYPERSOMNIA [None]
  - MALAISE [None]
  - ORAL MUCOSAL BLISTERING [None]
